FAERS Safety Report 7746633-6 (Version None)
Quarter: 2011Q3

REPORT INFORMATION
  Report Type: 
  Country: None (occurrence: None)
  Receive Date: 20110908
  Receipt Date: 20110823
  Transmission Date: 20111222
  Serious: Yes (Death, Life-Threatening)
  Sender: FDA-Public Use
  Company Number: AUR-APL-2010-02814

PATIENT
  Age: 61 Year
  Sex: Male

DRUGS (25)
  1. NOVALGIN (NOVO-PETRIN) [Concomitant]
  2. JONOSTERIL (JONOSTERIL  /00351401/) [Concomitant]
  3. METFORMIN HCL [Suspect]
     Indication: DIABETES MELLITUS
     Dosage: 2550 MG (850 MG, 3 IN 1 D), ORAL
     Route: 048
     Dates: end: 20101130
  4. ANIDULAFUNGIN (ANIDULAFUNGIN) [Suspect]
     Indication: ASPERGILLOSIS
     Dosage: 1 IN 1 D, INTRAVENOUS; 1 IN1 D, INTRAVENOUS
     Route: 042
     Dates: start: 20101031
  5. ANIDULAFUNGIN (ANIDULAFUNGIN) [Suspect]
     Indication: ASPERGILLOSIS
     Dosage: 1 IN 1 D, INTRAVENOUS; 1 IN1 D, INTRAVENOUS
     Route: 042
     Dates: start: 20101030, end: 20101030
  6. VFEND [Suspect]
     Indication: ASPERGILLOSIS
     Dosage: SEE IMAGE
     Route: 042
     Dates: start: 20101103, end: 20101103
  7. VFEND [Suspect]
     Indication: ASPERGILLOSIS
     Dosage: SEE IMAGE
     Route: 042
     Dates: start: 20101030, end: 20101103
  8. VFEND [Suspect]
     Indication: ASPERGILLOSIS
     Dosage: SEE IMAGE
     Route: 042
     Dates: start: 20101031, end: 20101102
  9. VFEND [Suspect]
     Indication: ASPERGILLOSIS
     Dosage: SEE IMAGE
     Route: 042
     Dates: start: 20101103, end: 20101103
  10. G-CSF (GRANULOCYE COLONY STIMULATING FACTOR) [Concomitant]
  11. ALLOPURINOL [Suspect]
     Indication: PROPHYLAXIS
     Dosage: 300 MG (300 MG, 1 IN 1 D), ORAL
     Route: 048
     Dates: end: 20101103
  12. METOHEXAL (METOPROLOL TARTRATE) [Concomitant]
  13. CLINDAYMYCIN (CLINDAMYCIN) [Concomitant]
  14. GRANOCYTE (LENOGRASTIM) [Concomitant]
  15. METOCLOPRAMIDE [Concomitant]
  16. VANCOMYCIN [Concomitant]
  17. MIRTAZAPINE [Suspect]
     Indication: DEPRESSION
     Dosage: 15 MG (15 MG, 1 IN 1 D)
     Dates: start: 20101028, end: 20101103
  18. PANTOPRAZOLE SODIUM [Concomitant]
  19. ISOPHANE INSULIN [Concomitant]
  20. FUROSEMIDE [Concomitant]
  21. TAZOBAC (PIP/TAZO) [Concomitant]
  22. NORVASC [Concomitant]
  23. ACYCLOVIR [Suspect]
     Indication: PROPHYLAXIS
     Dosage: 400 MG (400 MG, 1 IN 1 D), ORAL
     Route: 048
     Dates: start: 20101007, end: 20101103
  24. MEROPENEM [Concomitant]
  25. KALINOR-BRAUSETABLETTEN (KALINOR-BRAUSETABLETTEN) [Concomitant]

REACTIONS (12)
  - NAUSEA [None]
  - OEDEMA [None]
  - SEPSIS [None]
  - PULMONARY CONGESTION [None]
  - DEPRESSION [None]
  - PYREXIA [None]
  - RENAL FAILURE ACUTE [None]
  - PAIN [None]
  - NEUTROPENIA [None]
  - ACTIVATED PARTIAL THROMBOPLASTIN TIME SHORTENED [None]
  - ASPERGILLOSIS [None]
  - LUNG INFILTRATION [None]
